FAERS Safety Report 4968026-7 (Version None)
Quarter: 2006Q2

REPORT INFORMATION
  Report Type: 
  Country: None (occurrence: None)
  Receive Date: 20060410
  Receipt Date: 20060404
  Transmission Date: 20061013
  Serious: Yes (Hospitalization)
  Sender: FDA-Public Use
  Company Number: PHEH2006US04450

PATIENT
  Age: 40 Year
  Sex: Female

DRUGS (4)
  1. TEGRETOL [Suspect]
     Indication: CONVULSION
     Dosage: 1400 MG, TID
     Route: 048
  2. DILANTIN [Concomitant]
     Dosage: 200 MG, UNK
  3. MYSOLINE [Concomitant]
     Dosage: 450 MG, UNK
  4. LAMICTAL [Concomitant]
     Dosage: 225 MG, UNK

REACTIONS (4)
  - ABDOMINAL PAIN UPPER [None]
  - OVARIAN CYST [None]
  - RED BLOOD CELL COUNT DECREASED [None]
  - WHITE BLOOD CELL COUNT DECREASED [None]
